FAERS Safety Report 18218458 (Version 1)
Quarter: 2020Q3

REPORT INFORMATION
  Report Type: Spontaneous
  Country: US (occurrence: US)
  Receive Date: 20200901
  Receipt Date: 20200901
  Transmission Date: 20201103
  Serious: Yes (Disabling, Other)
  Sender: FDA-Public Use
  Company Number: US-PURDUE-USA-2020-0163995

PATIENT
  Sex: Female
  Weight: 90.7 kg

DRUGS (15)
  1. OXY.IR [Suspect]
     Active Substance: OXYCODONE HYDROCHLORIDE
     Indication: PAIN
     Route: 048
  2. OXYCODONE/ ACETAMINOPHEN TABLETS [Suspect]
     Active Substance: ACETAMINOPHEN\OXYCODONE HYDROCHLORIDE
     Indication: PAIN
     Route: 048
  3. LYRICA [Suspect]
     Active Substance: PREGABALIN
     Indication: PRODUCT USED FOR UNKNOWN INDICATION
     Dosage: 2 TABLET, TWICE
     Route: 048
     Dates: start: 20161017
  4. HYDROCODONE BITARTRATE AND ACETAMINOPHEN [Suspect]
     Active Substance: ACETAMINOPHEN\HYDROCODONE BITARTRATE
     Indication: PAIN
     Route: 048
  5. OXYFAST [Suspect]
     Active Substance: OXYCODONE
     Indication: PAIN
     Route: 048
  6. METHOTREXATE. [Concomitant]
     Active Substance: METHOTREXATE
     Indication: PRODUCT USED FOR UNKNOWN INDICATION
     Dosage: 7 TABLET, WEEKLY
     Route: 048
     Dates: start: 20160419
  7. OXYCONTIN [Suspect]
     Active Substance: OXYCODONE HYDROCHLORIDE
     Indication: PAIN
     Route: 048
  8. METFORMIN [Concomitant]
     Active Substance: METFORMIN HYDROCHLORIDE
     Indication: PRODUCT USED FOR UNKNOWN INDICATION
     Dosage: 1 TABLET, TWICE
     Route: 048
     Dates: start: 20160718
  9. COLCRYS [Concomitant]
     Active Substance: COLCHICINE
     Indication: PRODUCT USED FOR UNKNOWN INDICATION
     Dosage: 1 TABLET, DAILY
     Route: 048
     Dates: start: 20160419
  10. OXYCODONE HYDROCHLORIDE (SIMILAR TO NDA 22?272) [Suspect]
     Active Substance: OXYCODONE HYDROCHLORIDE
     Indication: PAIN
     Route: 048
  11. PERCOCET                           /00446701/ [Suspect]
     Active Substance: ACETAMINOPHEN\OXYCODONE HYDROCHLORIDE\OXYCODONE TEREPHTHALATE
     Indication: PAIN
     Dosage: 3 TABLET, DAILY
     Route: 048
  12. OXYCODONE HCL CR TABLETS (SIMILAR TO NDA 22?272) [Suspect]
     Active Substance: OXYCODONE HYDROCHLORIDE
     Indication: PAIN
     Route: 048
  13. DULOXETINE HYDROCHLORIDE. [Concomitant]
     Active Substance: DULOXETINE HYDROCHLORIDE
     Indication: PRODUCT USED FOR UNKNOWN INDICATION
     Dosage: 1 TABLET, DAILY
     Route: 048
     Dates: start: 20160718
  14. HEMOCYTE PLUS [Concomitant]
     Indication: PRODUCT USED FOR UNKNOWN INDICATION
     Dosage: 1 TABLET, DAILY
     Route: 048
     Dates: start: 20160419
  15. OXYCODONE HCL TABLETS (RHODES 91?490) [Suspect]
     Active Substance: OXYCODONE HYDROCHLORIDE
     Indication: PAIN
     Route: 048

REACTIONS (2)
  - Dependence [Unknown]
  - Disability [Not Recovered/Not Resolved]
